FAERS Safety Report 20894037 (Version 1)
Quarter: 2022Q2

REPORT INFORMATION
  Report Type: Spontaneous
  Country: US (occurrence: US)
  Receive Date: 20220531
  Receipt Date: 20220531
  Transmission Date: 20220721
  Serious: Yes (Hospitalization)
  Sender: FDA-Public Use
  Company Number: US-BRISTOL-MYERS SQUIBB COMPANY-2022-042468

PATIENT
  Age: 86 Year
  Sex: Male
  Weight: 74 kg

DRUGS (1)
  1. ENTECAVIR [Suspect]
     Active Substance: ENTECAVIR
     Indication: Chronic hepatitis B
     Dosage: DOSE : 0.5 MG;     FREQ : QD
     Route: 048

REACTIONS (2)
  - COVID-19 [Unknown]
  - Dysphagia [Unknown]

NARRATIVE: CASE EVENT DATE: 20220513
